FAERS Safety Report 4420332-0 (Version None)
Quarter: 2004Q3

REPORT INFORMATION
  Report Type: 
  Country: None (occurrence: None)
  Receive Date: 20040804
  Receipt Date: 20040722
  Transmission Date: 20050211
  Serious: Yes (Hospitalization, Other)
  Sender: FDA-Public Use
  Company Number: 207990

PATIENT
  Age: 46 Year
  Sex: Male

DRUGS (1)
  1. MABRHERA(RITUXIMAB) CONC FOR INFUSION [Suspect]
     Indication: DIFFUSE LARGE B-CELL LYMPHOMA
     Dosage: INTRAVENOUS
     Route: 042

REACTIONS (6)
  - BACTERIAL INFECTION [None]
  - HAEMOGLOBIN DECREASED [None]
  - NEUTROPENIC SEPSIS [None]
  - PLATELET COUNT DECREASED [None]
  - SEPTIC SHOCK [None]
  - WHITE BLOOD CELL COUNT DECREASED [None]
